FAERS Safety Report 11258891 (Version 1)
Quarter: 2015Q3

REPORT INFORMATION
  Report Type: Spontaneous
  Country: TR (occurrence: None)
  Receive Date: 20150708
  Receipt Date: 20150708
  Transmission Date: 20151125
  Serious: Yes (Hospitalization, Other)
  Sender: FDA-Public Use
  Company Number: ADR-2015-01272

PATIENT
  Age: 19 Year
  Sex: Female
  Weight: 50 kg

DRUGS (2)
  1. BACLOFEN (ORAL) [Suspect]
     Active Substance: BACLOFEN
  2. DICOFLENAC POTASSIUM [Suspect]
     Active Substance: DICLOFENAC POTASSIUM

REACTIONS (7)
  - Nystagmus [None]
  - Hypotonia [None]
  - Somnolence [None]
  - Haemodialysis [None]
  - Hyporeflexia [None]
  - Mydriasis [None]
  - Suicide attempt [None]

NARRATIVE: CASE EVENT DATE: 20150615
